FAERS Safety Report 8099942-8 (Version None)
Quarter: 2012Q1

REPORT INFORMATION
  Report Type: 
  Country: None (occurrence: None)
  Receive Date: 20120129
  Receipt Date: 20111128
  Transmission Date: 20120608
  Serious: No
  Sender: FDA-Public Use
  Company Number: US-ABBOTT-11P-163-0878346-00

PATIENT
  Age: 76 Year
  Sex: Female

DRUGS (9)
  1. ASACOL [Concomitant]
     Indication: CROHN'S DISEASE
     Route: 048
  2. HUMIRA [Suspect]
     Indication: CROHN'S DISEASE
     Dates: start: 20081101
  3. DOXYCYCLINE [Suspect]
     Indication: PNEUMONIA
  4. ASPIRIN [Concomitant]
     Indication: CARDIOVASCULAR EVENT PROPHYLAXIS
     Route: 048
  5. VITAMIN D [Concomitant]
     Indication: MEDICAL DIET
     Route: 048
  6. CALCIUM [Concomitant]
     Indication: MEDICAL DIET
  7. SPIRIVA [Concomitant]
     Indication: CHRONIC OBSTRUCTIVE PULMONARY DISEASE
     Route: 055
  8. VITAMIN B-12 [Concomitant]
     Indication: MEDICAL DIET
  9. CRESTOR [Concomitant]
     Indication: BLOOD CHOLESTEROL
     Route: 048

REACTIONS (8)
  - ULCER [None]
  - HYPERTENSION [None]
  - PNEUMONIA [None]
  - HIATUS HERNIA [None]
  - OESOPHAGITIS [None]
  - DIZZINESS [None]
  - MALAISE [None]
  - DYSPNOEA [None]
